FAERS Safety Report 11284636 (Version 5)
Quarter: 2016Q3

REPORT INFORMATION
  Report Type: Report from Study
  Country: US (occurrence: US)
  Receive Date: 20150720
  Receipt Date: 20160817
  Transmission Date: 20161109
  Serious: No
  Sender: FDA-Public Use
  Company Number: US-AEGERION PHARMACEUTICAL INC.-AEGR001139

PATIENT
  Age: 49 Year
  Sex: Male
  Weight: 128.35 kg

DRUGS (27)
  1. ASPIRIN. [Concomitant]
     Active Substance: ASPIRIN
     Indication: PROPHYLAXIS
     Dosage: 325 MG, QD
     Route: 048
     Dates: start: 201207, end: 20130910
  2. ATORVASTATIN [Concomitant]
     Active Substance: ATORVASTATIN
     Indication: CORONARY ARTERY DISEASE
  3. CLOPIDOGREL [Concomitant]
     Active Substance: CLOPIDOGREL BISULFATE
     Indication: CEREBROVASCULAR ACCIDENT
     Dosage: 75 MG, QD
     Route: 048
     Dates: start: 20120810
  4. OMEGA 3 [Concomitant]
     Active Substance: OMEGA-3 FATTY ACIDS
     Indication: PRODUCT USED FOR UNKNOWN INDICATION
  5. INDOMETHACIN. [Concomitant]
     Active Substance: INDOMETHACIN
     Indication: GOUT
     Dosage: 50 MG, TID
     Route: 048
     Dates: start: 20110303
  6. METOPROLOL. [Concomitant]
     Active Substance: METOPROLOL
     Indication: HYPERTENSION
     Dosage: 12.5 MG, BID
     Route: 048
     Dates: start: 20120810
  7. METOPROLOL. [Concomitant]
     Active Substance: METOPROLOL
     Indication: CEREBROVASCULAR ACCIDENT
  8. VITAMIN C [Concomitant]
     Active Substance: ASCORBIC ACID
     Indication: SUPPLEMENTATION THERAPY
     Dosage: 1000 MG, QD
     Route: 048
     Dates: start: 2010, end: 201310
  9. JUXTAPID [Suspect]
     Active Substance: LOMITAPIDE MESYLATE
     Indication: TYPE IIA HYPERLIPIDAEMIA
     Dosage: 5 MG, QD
     Route: 048
     Dates: start: 20130829, end: 20131017
  10. JUXTAPID [Suspect]
     Active Substance: LOMITAPIDE MESYLATE
     Dosage: UNK MG, QD
     Route: 048
     Dates: start: 20140623, end: 20140707
  11. CHLORTHALIDONE. [Concomitant]
     Active Substance: CHLORTHALIDONE
     Indication: HYPERTENSION
  12. METOPROLOL. [Concomitant]
     Active Substance: METOPROLOL
     Indication: CORONARY ARTERY DISEASE
  13. JUXTAPID [Suspect]
     Active Substance: LOMITAPIDE MESYLATE
     Dosage: 10 MG, QD
     Route: 048
     Dates: start: 20131018, end: 20140622
  14. ATORVASTATIN [Concomitant]
     Active Substance: ATORVASTATIN
     Indication: DYSLIPIDAEMIA
  15. ATORVASTATIN [Concomitant]
     Active Substance: ATORVASTATIN
     Indication: BLOOD CHOLESTEROL
     Dosage: 80 MG, QD
     Route: 048
     Dates: start: 201207
  16. CLOPIDOGREL [Concomitant]
     Active Substance: CLOPIDOGREL BISULFATE
     Indication: CORONARY ARTERY DISEASE
  17. PANTOPRAZOLE [Concomitant]
     Active Substance: PANTOPRAZOLE SODIUM
     Indication: GASTROOESOPHAGEAL REFLUX DISEASE
     Dosage: 40 MG, QD
     Route: 048
     Dates: start: 20120810
  18. DIPHTHERIA AND TETANUS TOXOIDS AND PERTUSSIS VACCINE ADSORBED NOS [Concomitant]
     Active Substance: DIPHTHERIA AND TETANUS TOXOIDS AND PERTUSSIS VACCINE
     Indication: IMMUNISATION
     Dosage: 0.5 ML, ONE TIME
     Route: 030
     Dates: start: 20131223, end: 20131223
  19. CHLORTHALIDONE. [Concomitant]
     Active Substance: CHLORTHALIDONE
     Indication: CEREBROVASCULAR ACCIDENT
  20. ZETIA [Concomitant]
     Active Substance: EZETIMIBE
     Indication: HYPERCHOLESTEROLAEMIA
     Dosage: 10 MG, QD
     Route: 048
     Dates: start: 20130524
  21. JUXTAPID [Suspect]
     Active Substance: LOMITAPIDE MESYLATE
     Dosage: 5 MG, QD
     Route: 048
     Dates: start: 20140708
  22. ASPIRIN. [Concomitant]
     Active Substance: ASPIRIN
     Indication: CORONARY ARTERY DISEASE
     Dosage: 81 MG, QD
     Route: 048
     Dates: start: 20130910
  23. ATORVASTATIN [Concomitant]
     Active Substance: ATORVASTATIN
     Indication: CEREBROVASCULAR ACCIDENT
  24. ALCLOMETASONE DIPROPIONATE. [Concomitant]
     Active Substance: ALCLOMETASONE DIPROPIONATE
     Indication: DERMATITIS
     Dosage: 1 APPLICATION, BID
     Route: 062
     Dates: start: 201308, end: 2013
  25. ZETIA [Concomitant]
     Active Substance: EZETIMIBE
     Indication: CORONARY ARTERY DISEASE
  26. CHLORTHALIDONE. [Concomitant]
     Active Substance: CHLORTHALIDONE
     Indication: OEDEMA PERIPHERAL
     Dosage: 25 MG, QD
     Route: 048
     Dates: start: 20120830
  27. ZETIA [Concomitant]
     Active Substance: EZETIMIBE
     Indication: PROPHYLAXIS

REACTIONS (4)
  - Sensory loss [Recovered/Resolved]
  - Weight decreased [Unknown]
  - Gastrointestinal disorder [Recovered/Resolved]
  - High density lipoprotein decreased [Recovered/Resolved]

NARRATIVE: CASE EVENT DATE: 20130910
